FAERS Safety Report 8028569-9 (Version None)
Quarter: 2012Q1

REPORT INFORMATION
  Report Type: 
  Country: None (occurrence: None)
  Receive Date: 20120106
  Receipt Date: 20120103
  Transmission Date: 20120608
  Serious: Yes (Other)
  Sender: FDA-Public Use
  Company Number: NZ-ALLERGAN-1115092US

PATIENT
  Age: 59 Year
  Sex: Female

DRUGS (4)
  1. KETOROLAC TROMETHAMINE [Suspect]
     Indication: TRABECULOPLASTY
     Dosage: 2 GTT, QD
     Route: 047
  2. LATANOPROST [Concomitant]
     Indication: GLAUCOMA
     Dosage: 1 GTT, QPM
  3. KETOROLAC TROMETHAMINE [Suspect]
     Indication: CONJUNCTIVITIS
     Dosage: 2 GTT, TID
     Route: 047
     Dates: start: 20111012, end: 20111019
  4. ALPHAGAN P [Concomitant]
     Indication: GLAUCOMA
     Dosage: 2 GTT, BID
     Route: 047

REACTIONS (18)
  - OEDEMA PERIPHERAL [None]
  - NECK PAIN [None]
  - ASTHENIA [None]
  - ACTIVITIES OF DAILY LIVING IMPAIRED [None]
  - JOINT SWELLING [None]
  - INTERMITTENT CLAUDICATION [None]
  - HEPATOCELLULAR INJURY [None]
  - RASH ERYTHEMATOUS [None]
  - HEADACHE [None]
  - EYE INFLAMMATION [None]
  - FATIGUE [None]
  - MUSCULAR WEAKNESS [None]
  - ARTHRALGIA [None]
  - EXERCISE TOLERANCE DECREASED [None]
  - TERMINAL INSOMNIA [None]
  - PAIN IN EXTREMITY [None]
  - DYSPNOEA [None]
  - PAIN [None]
